FAERS Safety Report 5153851-2 (Version None)
Quarter: 2006Q4

REPORT INFORMATION
  Report Type: 
  Country: None (occurrence: None)
  Receive Date: 20061120
  Receipt Date: 20061109
  Transmission Date: 20070319
  Serious: Yes (Other)
  Sender: FDA-Public Use
  Company Number: PHBS2006CL17545

PATIENT
  Age: 27 Year
  Sex: Male

DRUGS (3)
  1. LEPONEX [Suspect]
     Indication: SCHIZOPHRENIA
     Dosage: 400 MG/D
     Route: 048
  2. VALCOTE [Concomitant]
  3. EUTIROX [Concomitant]

REACTIONS (2)
  - OBESITY [None]
  - WEIGHT INCREASED [None]
